FAERS Safety Report 20850740 (Version 4)
Quarter: 2022Q2

REPORT INFORMATION
  Report Type: Spontaneous
  Country: JP (occurrence: JP)
  Receive Date: 20220519
  Receipt Date: 20220621
  Transmission Date: 20220720
  Serious: Yes (Death, Other)
  Sender: FDA-Public Use
  Company Number: JP-GILEAD-2022-0581768

PATIENT
  Age: 62 Year
  Sex: Female

DRUGS (7)
  1. AMPHOTERICIN B [Suspect]
     Active Substance: AMPHOTERICIN B
     Indication: Aspergillus infection
     Route: 041
  2. AMPHOTERICIN B [Suspect]
     Active Substance: AMPHOTERICIN B
     Indication: Sinusitis
  3. MICAFUNGIN [Suspect]
     Active Substance: MICAFUNGIN
     Indication: Pneumonia fungal
     Dosage: UNK UNK, UNKNOWN FREQ.
     Route: 041
  4. MICAFUNGIN [Suspect]
     Active Substance: MICAFUNGIN
     Indication: Sinusitis
  5. FLUDARABINE [Concomitant]
     Active Substance: FLUDARABINE PHOSPHATE
     Indication: Product used for unknown indication
     Route: 065
  6. BUSULFAN [Concomitant]
     Active Substance: BUSULFAN
     Indication: Product used for unknown indication
     Route: 042
  7. CYCLOPHOSPHAMIDE [Concomitant]
     Active Substance: CYCLOPHOSPHAMIDE
     Indication: Product used for unknown indication
     Route: 065

REACTIONS (3)
  - Depressed level of consciousness [Fatal]
  - Aneurysm ruptured [Fatal]
  - Brain stem infarction [Fatal]
